FAERS Safety Report 6032719-3 (Version None)
Quarter: 2009Q1

REPORT INFORMATION
  Report Type: 
  Country: None (occurrence: None)
  Receive Date: 20090109
  Receipt Date: 20081229
  Transmission Date: 20090719
  Serious: Yes (Hospitalization, Other)
  Sender: FDA-Public Use
  Company Number: BR-PFIZER INC-2008098242

PATIENT

DRUGS (1)
  1. GABAPENTIN [Suspect]
     Indication: ARTHRALGIA
     Route: 048
     Dates: start: 20040101

REACTIONS (4)
  - ASTHENIA [None]
  - BACK PAIN [None]
  - BLADDER CANCER [None]
  - PAIN IN EXTREMITY [None]
